FAERS Safety Report 6567557-6 (Version None)
Quarter: 2010Q1

REPORT INFORMATION
  Report Type: 
  Country: None (occurrence: None)
  Receive Date: 20100202
  Receipt Date: 20100126
  Transmission Date: 20100710
  Serious: Yes (Hospitalization)
  Sender: FDA-Public Use
  Company Number: NL-GENENTECH-274680

PATIENT
  Sex: Male
  Weight: 88 kg

DRUGS (10)
  1. RITUXIMAB [Suspect]
     Indication: DIFFUSE LARGE B-CELL LYMPHOMA
     Dosage: 350 MG, QD
     Route: 042
     Dates: start: 20081007
  2. RITUXIMAB [Suspect]
     Dosage: 750 MG, QD
     Route: 042
     Dates: start: 20081209
  3. PREDNISONE [Suspect]
     Indication: DIFFUSE LARGE B-CELL LYMPHOMA
     Dosage: 100 MG, QD
     Route: 048
     Dates: start: 20081209
  4. CYCLOPHOSPHAMIDE [Suspect]
     Indication: DIFFUSE LARGE B-CELL LYMPHOMA
     Dosage: 1540 MG, QD
     Route: 042
     Dates: start: 20081209
  5. DOXORUBICIN HCL [Suspect]
     Indication: DIFFUSE LARGE B-CELL LYMPHOMA
     Dosage: 105 MG, QD
     Route: 042
     Dates: start: 20081209
  6. VINCRISTINE [Suspect]
     Indication: DIFFUSE LARGE B-CELL LYMPHOMA
     Dosage: 20 MG, QD
     Route: 042
     Dates: start: 20081209
  7. NEUPOGEN [Suspect]
     Indication: DIFFUSE LARGE B-CELL LYMPHOMA
     Dosage: 6 MG, QD
     Route: 058
     Dates: start: 20081210
  8. ZOLPIDEM [Concomitant]
     Indication: INSOMNIA
     Route: 048
  9. PAROXETINE HCL [Concomitant]
     Indication: DRUG USE FOR UNKNOWN INDICATION
     Route: 048
  10. ASCAL [Concomitant]
     Indication: UNEVALUABLE EVENT
     Dosage: UNK
     Route: 048
     Dates: start: 20030924

REACTIONS (1)
  - PULMONARY EMBOLISM [None]
